FAERS Safety Report 5042875-1 (Version None)
Quarter: 2006Q3

REPORT INFORMATION
  Report Type: 
  Country: None (occurrence: None)
  Receive Date: 20060705
  Receipt Date: 20060628
  Transmission Date: 20061208
  Serious: Yes (Life-Threatening)
  Sender: FDA-Public Use
  Company Number: IT-GLAXOSMITHKLINE-B0429595A

PATIENT
  Age: 74 Year
  Sex: Male

DRUGS (5)
  1. AMOXYCILLIN + CLAVULANIC ACID [Suspect]
     Indication: TOOTH ABSCESS
     Dosage: 1MG PER DAY
     Route: 048
     Dates: start: 20060626, end: 20060626
  2. AMLODIPINE BESYLATE [Concomitant]
     Dosage: 10MG PER DAY
     Route: 048
  3. ASPIRIN [Concomitant]
  4. ATENOLOL [Concomitant]
  5. GLIMEPIRIDE [Concomitant]
     Dosage: 2MG PER DAY
     Route: 048

REACTIONS (6)
  - ASTHENIA [None]
  - CIRCULATORY COLLAPSE [None]
  - ERYTHEMA [None]
  - FACE OEDEMA [None]
  - HYPOTENSION [None]
  - PRURITUS GENERALISED [None]
